FAERS Safety Report 17676054 (Version 1)
Quarter: 2020Q2

REPORT INFORMATION
  Report Type: Spontaneous
  Country: FR (occurrence: FR)
  Receive Date: 20200416
  Receipt Date: 20200416
  Transmission Date: 20200714
  Serious: Yes (Hospitalization)
  Sender: FDA-Public Use
  Company Number: FR-MYLANLABS-2020M1038294

PATIENT
  Age: 95 Year
  Sex: Male
  Weight: 69.5 kg

DRUGS (1)
  1. MIDAZOLAM. [Suspect]
     Active Substance: MIDAZOLAM
     Indication: SEDATIVE THERAPY
     Dosage: 0,4 MG/H DE 10H20 ? 13H30 PUIS 4MG/H DE 13H30 ? 15H20
     Route: 058
     Dates: start: 20200302, end: 20200302

REACTIONS (2)
  - Incorrect drug administration rate [Recovered/Resolved]
  - Somnolence [Recovered/Resolved]

NARRATIVE: CASE EVENT DATE: 20200302
